FAERS Safety Report 19914088 (Version 10)
Quarter: 2022Q3

REPORT INFORMATION
  Report Type: Spontaneous
  Country: JP (occurrence: JP)
  Receive Date: 20211004
  Receipt Date: 20220916
  Transmission Date: 20221027
  Serious: Yes (Hospitalization, Other)
  Sender: FDA-Public Use
  Company Number: JP-BRISTOL-MYERS SQUIBB COMPANY-BMS-2021-099687

PATIENT
  Age: 74 Year
  Sex: Male

DRUGS (9)
  1. OPDIVO [Suspect]
     Active Substance: NIVOLUMAB
     Indication: Metastatic renal cell carcinoma
     Dosage: UNK
     Route: 041
     Dates: start: 20201215, end: 20201215
  2. OPDIVO [Suspect]
     Active Substance: NIVOLUMAB
     Dosage: UNK
     Route: 041
     Dates: start: 20210329, end: 20210329
  3. YERVOY [Suspect]
     Active Substance: IPILIMUMAB
     Indication: Metastatic renal cell carcinoma
     Dosage: UNK
     Route: 041
     Dates: start: 20201215, end: 20201215
  4. YERVOY [Suspect]
     Active Substance: IPILIMUMAB
  5. DENOSUMAB [Concomitant]
     Active Substance: DENOSUMAB
     Indication: Product used for unknown indication
     Dosage: UNK
     Route: 065
     Dates: start: 20210330
  6. FENTANYL [Concomitant]
     Active Substance: FENTANYL
     Indication: Back pain
     Dosage: 3 MG
     Route: 061
  7. FENTANYL [Concomitant]
     Active Substance: FENTANYL
     Route: 061
  8. OXINORM [Concomitant]
     Indication: Back pain
     Dosage: 5 MG, Q8H
     Route: 065
  9. OXINORM [Concomitant]
     Dosage: Q8D
     Route: 065

REACTIONS (8)
  - Oesophageal ulcer [Recovering/Resolving]
  - Immune-mediated dermatitis [Recovering/Resolving]
  - Radiation pneumonitis [Recovering/Resolving]
  - Bronchiolitis [Recovering/Resolving]
  - Deep vein thrombosis [Unknown]
  - Adrenal insufficiency [Unknown]
  - Bursitis [Recovering/Resolving]
  - Malaise [Unknown]

NARRATIVE: CASE EVENT DATE: 20210112
